FAERS Safety Report 6074795-8 (Version None)
Quarter: 2009Q1

REPORT INFORMATION
  Report Type: 
  Country: None (occurrence: None)
  Receive Date: 20090210
  Receipt Date: 20090210
  Transmission Date: 20090719
  Serious: No
  Sender: FDA-Public Use
  Company Number: None

PATIENT
  Age: 80 Year
  Sex: Female
  Weight: 60.3284 kg

DRUGS (2)
  1. ENABLEX [Suspect]
     Indication: INCONTINENCE
     Dosage: 7.5MG ONCE DAILY 047
     Dates: start: 20071001
  2. DITROPAN [Suspect]
     Indication: RENAL FAILURE
     Dosage: 5MG ONCE DAILY 047
     Dates: start: 20070701

REACTIONS (3)
  - ACTIVITIES OF DAILY LIVING IMPAIRED [None]
  - CONSTIPATION [None]
  - INCONTINENCE [None]
